FAERS Safety Report 7631664-7 (Version None)
Quarter: 2011Q3

REPORT INFORMATION
  Report Type: 
  Country: None (occurrence: None)
  Receive Date: 20110725
  Receipt Date: 20110311
  Transmission Date: 20111222
  Serious: No
  Sender: FDA-Public Use
  Company Number: US-BRISTOL-MYERS SQUIBB COMPANY-15543440

PATIENT
  Age: 45 Year
  Sex: Female

DRUGS (9)
  1. DIOVAN [Concomitant]
  2. METFORMIN HCL [Concomitant]
  3. WARFARIN SODIUM [Suspect]
     Indication: THROMBOSIS
     Dosage: DOSE INCREASED TO 8.5MG THEN 9MG
     Dates: start: 20101101
  4. LIPITOR [Concomitant]
  5. VICODIN [Concomitant]
     Dosage: 1DF=LOW DOSE
  6. SIMVASTATIN [Concomitant]
  7. FRAGMIN [Concomitant]
     Dosage: DURATION OF THERAPY:ONE AND HALF MONTH, DISCONTINUED 1DF=10,000 IBU'S FORM:INJ
  8. ZOLOFT [Concomitant]
  9. TRAZODONE HCL [Concomitant]

REACTIONS (3)
  - ALOPECIA [None]
  - FATIGUE [None]
  - INTERNATIONAL NORMALISED RATIO DECREASED [None]
